FAERS Safety Report 6315067-3 (Version None)
Quarter: 2009Q3

REPORT INFORMATION
  Report Type: 
  Country: None (occurrence: None)
  Receive Date: 20090817
  Receipt Date: 20090806
  Transmission Date: 20100115
  Serious: Yes (Hospitalization)
  Sender: FDA-Public Use
  Company Number: 2009AL005188

PATIENT
  Age: 77 Year
  Sex: Female

DRUGS (6)
  1. MIRTAZAPINE [Suspect]
     Indication: DEPRESSED MOOD
     Dosage: 30 MG; QD; PO
     Route: 048
     Dates: start: 20080509
  2. PROTELOS [Concomitant]
  3. PARACETAMOL [Concomitant]
  4. OMACOR [Concomitant]
  5. MOMETASONE FUROATE [Concomitant]
  6. ASPIRIN [Concomitant]

REACTIONS (3)
  - DYSPNOEA [None]
  - HAEMATOMA INFECTION [None]
  - IMPAIRED HEALING [None]
